FAERS Safety Report 6245878-4 (Version None)
Quarter: 2009Q2

REPORT INFORMATION
  Report Type: 
  Country: None (occurrence: None)
  Receive Date: 20090626
  Receipt Date: 20090615
  Transmission Date: 20091009
  Serious: Yes (Life-Threatening, Hospitalization)
  Sender: FDA-Public Use
  Company Number: GB-RANBAXY-2009RR-25040

PATIENT
  Age: 76 Year
  Sex: Female
  Weight: 65 kg

DRUGS (7)
  1. MIDAZOLAM HCL [Suspect]
     Indication: ANAESTHESIA
     Dosage: 2 MG, UNK
     Route: 042
     Dates: start: 20090511, end: 20090511
  2. CHLORHEXIDINE GLUCONATE [Suspect]
     Dosage: UNK
     Route: 061
     Dates: start: 20090511, end: 20090511
  3. FENTANYL [Suspect]
     Indication: ANAESTHESIA
     Dosage: 50 UG, UNK
     Route: 042
     Dates: start: 20090511, end: 20090511
  4. ONDANSETRON [Suspect]
     Indication: ANAESTHESIA
     Dosage: 4 MG, UNK
     Route: 042
     Dates: start: 20090511, end: 20090511
  5. PROPOFOL [Suspect]
     Indication: ANAESTHESIA
     Dosage: 100 MG, UNK
     Route: 042
     Dates: start: 20090511, end: 20090511
  6. VECURONIUM BROMIDE [Suspect]
     Indication: ANAESTHESIA
     Dosage: 7 MG, UNK
     Route: 042
     Dates: start: 20090511, end: 20090511
  7. BETAHISTINE [Concomitant]
     Indication: MENIERE'S DISEASE
     Dosage: 16 MG, UNK
     Route: 048
     Dates: start: 20080701

REACTIONS (2)
  - HYPOTENSION [None]
  - URTICARIA [None]
